FAERS Safety Report 10390544 (Version 2)
Quarter: 2014Q3

REPORT INFORMATION
  Report Type: Spontaneous
  Country: DE (occurrence: None)
  Receive Date: 20140814
  Receipt Date: 20140909
  Transmission Date: 20150326
  Serious: Yes (Hospitalization)
  Sender: FDA-Public Use
  Company Number: DE-LHC-2014069

PATIENT
  Sex: Female

DRUGS (1)
  1. CONOXIA [Suspect]
     Active Substance: OXYGEN
     Route: 055

REACTIONS (4)
  - Frostbite [None]
  - Inflammation [None]
  - Occupational exposure to product [None]
  - Device defective [None]

NARRATIVE: CASE EVENT DATE: 20140722
